FAERS Safety Report 25526309 (Version 2)
Quarter: 2025Q3

REPORT INFORMATION
  Report Type: Spontaneous
  Country: CA (occurrence: CA)
  Receive Date: 20250707
  Receipt Date: 20250915
  Transmission Date: 20251020
  Serious: Yes (Hospitalization, Other)
  Sender: MYLAN
  Company Number: CA-MYLANLABS-2025M1055855

PATIENT
  Age: 76 Year
  Sex: Female

DRUGS (25)
  1. VENLAFAXINE [Suspect]
     Active Substance: VENLAFAXINE HYDROCHLORIDE
     Indication: Depression
     Dosage: 400 MILLIGRAM, QD (1 EVERY 1 DAYS)
  2. VENLAFAXINE [Suspect]
     Active Substance: VENLAFAXINE HYDROCHLORIDE
     Indication: Anxiety
     Dosage: 375 MILLIGRAM, QD (1 EVERY 1 DAYS)
  3. VENLAFAXINE [Suspect]
     Active Substance: VENLAFAXINE HYDROCHLORIDE
     Dosage: 337.5 MILLIGRAM, QD (1 EVERY 1 DAYS)
  4. FUROSEMIDE [Suspect]
     Active Substance: FUROSEMIDE
     Indication: Urinary retention
     Dosage: 20 MILLIGRAM, 3XW (3 EVERY 1 WEEKS)
  5. FUROSEMIDE [Suspect]
     Active Substance: FUROSEMIDE
     Dosage: 10 MILLIGRAM, 3XW (3 EVERY 1 WEEKS)
  6. DOXEPIN [Suspect]
     Active Substance: DOXEPIN
     Indication: Depression
     Dosage: 250 MILLIGRAM, QD (1 EVERY 1 DAYS)
  7. DOXEPIN [Suspect]
     Active Substance: DOXEPIN
     Indication: Anxiety
     Dosage: 100 MILLIGRAM, BID (2 EVERY 1 DAYS)
  8. DOXEPIN [Suspect]
     Active Substance: DOXEPIN
  9. DOXEPIN [Suspect]
     Active Substance: DOXEPIN
  10. BREO ELLIPTA [Concomitant]
     Active Substance: FLUTICASONE FUROATE\VILANTEROL TRIFENATATE
  11. CALCIUM [Concomitant]
     Active Substance: CALCIUM
  12. CLOTRIMAZOLE [Concomitant]
     Active Substance: CLOTRIMAZOLE
  13. COLLAGEN [Concomitant]
     Active Substance: COLLAGEN
  14. DAPAGLIFLOZIN [Concomitant]
     Active Substance: DAPAGLIFLOZIN
  15. DICLOFENAC [Concomitant]
     Active Substance: DICLOFENAC
  16. INSULIN GLARGINE [Concomitant]
     Active Substance: INSULIN GLARGINE
  17. MAGNESIUM [Concomitant]
     Active Substance: MAGNESIUM
  18. PANTOPRAZOLE [Concomitant]
     Active Substance: PANTOPRAZOLE
  19. PSEUDOEPHEDRINE [Concomitant]
     Active Substance: PSEUDOEPHEDRINE
  20. RISEDRONATE SODIUM [Concomitant]
     Active Substance: RISEDRONATE SODIUM
  21. ROSUVASTATIN [Concomitant]
     Active Substance: ROSUVASTATIN
  22. ALBUTEROL [Concomitant]
     Active Substance: ALBUTEROL
  23. SEMAGLUTIDE [Concomitant]
     Active Substance: SEMAGLUTIDE
  24. VITAMIN B12 [Concomitant]
     Active Substance: CYANOCOBALAMIN
  25. VITAMIN D [Concomitant]
     Active Substance: VITAMIN D NOS

REACTIONS (7)
  - Cognitive disorder [Recovering/Resolving]
  - Autonomic neuropathy [Recovering/Resolving]
  - Dizziness [Recovering/Resolving]
  - Drug withdrawal syndrome [Unknown]
  - Joint swelling [Unknown]
  - Nausea [Unknown]
  - Tremor [Unknown]
